FAERS Safety Report 25895941 (Version 1)
Quarter: 2025Q4

REPORT INFORMATION
  Report Type: Spontaneous
  Country: US (occurrence: None)
  Receive Date: 20251007
  Receipt Date: 20251007
  Transmission Date: 20260117
  Serious: No
  Sender: FDA-CTU
  Company Number: None

PATIENT
  Age: 29 Year
  Sex: Female
  Weight: 112.5 kg

DRUGS (14)
  1. HUMIRA [Suspect]
     Active Substance: ADALIMUMAB
     Indication: Hidradenitis
     Dosage: OTHER FREQUENCY : ONCE A WEEK;?
     Route: 058
  2. PROPRANOLOL [Concomitant]
     Active Substance: PROPRANOLOL HYDROCHLORIDE
  3. PRAZOSIN [Concomitant]
     Active Substance: PRAZOSIN
  4. MELATONIN [Concomitant]
     Active Substance: MELATONIN
  5. LITHIUM CARBONATE [Concomitant]
     Active Substance: LITHIUM CARBONATE
  6. FLUOXETINE [Concomitant]
     Active Substance: FLUOXETINE HYDROCHLORIDE
  7. VITAMIN B12 [Concomitant]
     Active Substance: CYANOCOBALAMIN
  8. FENOFIBRATE [Concomitant]
     Active Substance: FENOFIBRATE
  9. OMEPRAZOLE [Concomitant]
     Active Substance: OMEPRAZOLE
  10. CHOLECALCIFEROL [Concomitant]
     Active Substance: CHOLECALCIFEROL
  11. METFORMIN [Concomitant]
     Active Substance: METFORMIN HYDROCHLORIDE
  12. DOCUSATE CALCIUM [Concomitant]
     Active Substance: DOCUSATE CALCIUM
  13. MIDOL MAX ST MENSTRUAL [Concomitant]
  14. MULTIVITAMIN GUMMIES [Concomitant]

REACTIONS (3)
  - Skin tightness [None]
  - Feeling hot [None]
  - Hyperhidrosis [None]

NARRATIVE: CASE EVENT DATE: 20250916
